FAERS Safety Report 15658892 (Version 3)
Quarter: 2018Q4

REPORT INFORMATION
  Report Type: Spontaneous
  Country: PL (occurrence: PL)
  Receive Date: 20181126
  Receipt Date: 20181212
  Transmission Date: 20190205
  Serious: Yes (Hospitalization, Other)
  Sender: FDA-Public Use
  Company Number: PL-BAXTER-2018BAX028520

PATIENT
  Age: 64 Year
  Sex: Female

DRUGS (6)
  1. DOXORUBICIN HYDROCHLORIDE. [Suspect]
     Active Substance: DOXORUBICIN HYDROCHLORIDE
     Indication: B-CELL LYMPHOMA
     Dosage: R-CHOP REGIMEN  ADMINISTERED EVERY 21 DAYS, 3 CYCLES
     Route: 065
  2. PREDNISOLONE. [Suspect]
     Active Substance: PREDNISOLONE
     Indication: B-CELL LYMPHOMA
     Dosage: R-CHOP REGIMEN  ADMINISTERED EVERY 21 DAYS, 3 CYCLES?DOSAGE FORM: UNSPECIFIED
     Route: 065
  3. VINCRISTINE SULFATE. [Suspect]
     Active Substance: VINCRISTINE SULFATE
     Indication: B-CELL LYMPHOMA
     Dosage: R-CHOP REGIMEN  ADMINISTERED EVERY 21 DAYS, 3 CYCLES?DOSAGE FORM: UNSPECIFIED
     Route: 065
  4. ENDOXAN [Suspect]
     Active Substance: CYCLOPHOSPHAMIDE
     Indication: B-CELL LYMPHOMA
     Dosage: R-CHOP REGIMEN  ADMINISTERED EVERY 21 DAYS, 3 CYCLES?DOSAGE FORM: UNSPECIFIED
     Route: 065
  5. RITUXIMAB. [Suspect]
     Active Substance: RITUXIMAB
     Indication: B-CELL LYMPHOMA
     Dosage: R-CHOP REGIMEN  ADMINISTERED EVERY 21 DAYS, 3 CYCLES?DOSAGE FORM: UNSPECIFIED
     Route: 065
  6. PEGFILGRASTIM [Suspect]
     Active Substance: PEGFILGRASTIM
     Indication: PROPHYLAXIS
     Dosage: 3 CYCLES
     Route: 065

REACTIONS (7)
  - Dyspnoea [Unknown]
  - Neutropenia [Unknown]
  - Febrile neutropenia [Unknown]
  - General physical health deterioration [Unknown]
  - Off label use [Unknown]
  - Product use in unapproved indication [Unknown]
  - Pneumonia [Unknown]
